FAERS Safety Report 23690127 (Version 1)
Quarter: 2024Q2

REPORT INFORMATION
  Report Type: Spontaneous
  Country: US (occurrence: US)
  Receive Date: 20240401
  Receipt Date: 20240401
  Transmission Date: 20240716
  Serious: Yes (Other)
  Sender: FDA-Public Use
  Company Number: US-ADC THERAPEUTICS SA-ADC-2024-000092

PATIENT
  Sex: Female

DRUGS (2)
  1. ZYNLONTA [Suspect]
     Active Substance: LONCASTUXIMAB TESIRINE-LPYL
     Indication: Diffuse large B-cell lymphoma
     Dosage: UNK
     Route: 042
     Dates: start: 202309, end: 202309
  2. ZYNLONTA [Suspect]
     Active Substance: LONCASTUXIMAB TESIRINE-LPYL
     Dosage: UNK
     Route: 042
     Dates: start: 202312, end: 202312

REACTIONS (10)
  - Neuropathy peripheral [Unknown]
  - Tooth infection [Unknown]
  - Venous thrombosis [Unknown]
  - Eye oedema [Unknown]
  - Muscle tightness [Unknown]
  - Swelling face [Unknown]
  - Oedema peripheral [Unknown]
  - Dyspnoea [Unknown]
  - Rash vesicular [Unknown]
  - Pruritus [Unknown]

NARRATIVE: CASE EVENT DATE: 20230101
